FAERS Safety Report 9757543 (Version 8)
Quarter: 2014Q4

REPORT INFORMATION
  Report Type: Report from Study
  Country: CA (occurrence: CA)
  Receive Date: 20131216
  Receipt Date: 20141031
  Transmission Date: 20150529
  Serious: Yes (Other)
  Sender: FDA-Public Use
  Company Number: CA-ROCHE-1238286

PATIENT
  Age: 28 Year
  Sex: Female
  Weight: 57.8 kg

DRUGS (12)
  1. SOLU-MEDROL [Concomitant]
     Active Substance: METHYLPREDNISOLONE SODIUM SUCCINATE
     Indication: PREMEDICATION
     Route: 042
     Dates: start: 20130527
  2. SOLU-MEDROL [Concomitant]
     Active Substance: METHYLPREDNISOLONE SODIUM SUCCINATE
     Route: 042
     Dates: start: 20131022
  3. PROCHLOR [Concomitant]
     Route: 065
     Dates: start: 2012
  4. ESTROGEL [Concomitant]
     Active Substance: ESTRADIOL
     Dosage: DOES NOT TAKE
     Route: 065
     Dates: start: 2012
  5. EMEND [Concomitant]
     Active Substance: APREPITANT
     Route: 065
     Dates: start: 2012
  6. AVASTIN [Suspect]
     Active Substance: BEVACIZUMAB
     Route: 042
     Dates: start: 20140805
  7. TYLENOL [Concomitant]
     Active Substance: ACETAMINOPHEN
     Indication: PREMEDICATION
     Route: 048
     Dates: start: 20130527
  8. BENADRYL [Concomitant]
     Active Substance: DIPHENHYDRAMINE HYDROCHLORIDE
     Indication: PREMEDICATION
     Route: 048
     Dates: start: 20130527, end: 20130909
  9. AVASTIN [Suspect]
     Active Substance: BEVACIZUMAB
     Indication: OVARIAN CANCER METASTATIC
     Route: 042
     Dates: start: 20130527, end: 20140805
  10. NYSTATIN. [Concomitant]
     Active Substance: NYSTATIN
     Route: 065
     Dates: start: 2012
  11. DEXAMETHASONE. [Concomitant]
     Active Substance: DEXAMETHASONE
     Route: 065
     Dates: start: 2012
  12. ONDANSETRON [Concomitant]
     Active Substance: ONDANSETRON
     Route: 065
     Dates: start: 2012

REACTIONS (20)
  - Neutrophil count increased [Unknown]
  - Protein urine [Unknown]
  - Fatigue [Not Recovered/Not Resolved]
  - Product use issue [Unknown]
  - Mean platelet volume decreased [Unknown]
  - Blood magnesium decreased [Unknown]
  - Proteinuria [Unknown]
  - Lymphocyte count decreased [Unknown]
  - Emotional distress [Not Recovered/Not Resolved]
  - Lymphocyte count decreased [Unknown]
  - Blood test abnormal [Unknown]
  - White blood cell count decreased [Unknown]
  - Lymphocyte count decreased [Unknown]
  - Injection site extravasation [Unknown]
  - Eosinophil count increased [Unknown]
  - Blood magnesium decreased [Unknown]
  - Platelet count increased [Unknown]
  - Hypertension [Unknown]
  - Red cell distribution width increased [Unknown]
  - Urinary tract infection [Recovered/Resolved]

NARRATIVE: CASE EVENT DATE: 20130617
